FAERS Safety Report 13023136 (Version 2)
Quarter: 2017Q4

REPORT INFORMATION
  Report Type: Spontaneous
  Country: US (occurrence: US)
  Receive Date: 20161213
  Receipt Date: 20171219
  Transmission Date: 20180320
  Serious: No
  Sender: FDA-Public Use
  Company Number: US-TEVA-678789USA

PATIENT

DRUGS (1)
  1. AZITHROMYCIN ANHYDROUS. [Suspect]
     Active Substance: AZITHROMYCIN ANHYDROUS
     Dosage: 200MG/5ML
     Route: 065
     Dates: start: 20160715, end: 20160715

REACTIONS (3)
  - Vomiting [Unknown]
  - Product taste abnormal [Recovered/Resolved]
  - Dysgeusia [Recovered/Resolved]
